FAERS Safety Report 9469581 (Version 4)
Quarter: 2013Q4

REPORT INFORMATION
  Report Type: Report from Study
  Country: CA (occurrence: CA)
  Receive Date: 20130822
  Receipt Date: 20131008
  Transmission Date: 20140711
  Serious: Yes (Other)
  Sender: FDA-Public Use
  Company Number: CA-ROCHE-1208245

PATIENT
  Sex: Female
  Weight: 94 kg

DRUGS (8)
  1. ACTEMRA [Suspect]
     Indication: RHEUMATOID ARTHRITIS
     Route: 042
     Dates: start: 20101125
  2. ACTEMRA [Suspect]
     Route: 042
     Dates: start: 20120302
  3. ACTEMRA [Suspect]
     Route: 042
     Dates: start: 20120329
  4. ACTEMRA [Suspect]
     Route: 042
     Dates: start: 20120913
  5. ACTEMRA [Suspect]
     Dosage: DOSE REDUCED TO 7 MG/KG FROM 8 MG/KG.
     Route: 065
  6. ACTEMRA [Suspect]
     Dosage: DOSE INCREASE TO 8 MG/KG FROM 7 MG/KG.?5 EVERYWEEK
     Route: 065
  7. PLAQUENIL [Concomitant]
  8. CRESTOR [Concomitant]

REACTIONS (2)
  - Pulmonary oedema [Not Recovered/Not Resolved]
  - Weight decreased [Recovered/Resolved]
